FAERS Safety Report 7201938-2 (Version None)
Quarter: 2010Q4

REPORT INFORMATION
  Report Type: 
  Country: None (occurrence: None)
  Receive Date: 20101215
  Receipt Date: 20101208
  Transmission Date: 20110411
  Serious: Yes (Other)
  Sender: FDA-Public Use
  Company Number: 20109768

PATIENT
  Sex: Male

DRUGS (1)
  1. LIORESAL [Suspect]
     Indication: MUSCLE SPASTICITY
     Dosage: DAILY, INTRATHECAL
     Route: 037

REACTIONS (11)
  - ABDOMINAL PAIN [None]
  - ABDOMINAL PAIN UPPER [None]
  - BURNING SENSATION [None]
  - DEVICE DAMAGE [None]
  - DEVICE LEAKAGE [None]
  - DIARRHOEA [None]
  - IATROGENIC INJURY [None]
  - IMPLANT SITE EFFUSION [None]
  - IMPLANT SITE OEDEMA [None]
  - MALAISE [None]
  - VOMITING [None]
